FAERS Safety Report 4485855-7 (Version None)
Quarter: 2004Q3

REPORT INFORMATION
  Report Type: 
  Country: None (occurrence: None)
  Receive Date: 20040921
  Receipt Date: 20031002
  Transmission Date: 20050211
  Serious: Yes (Hospitalization)
  Sender: FDA-Public Use
  Company Number: 163-20785-03100128

PATIENT
  Age: 63 Year
  Sex: Male

DRUGS (19)
  1. THALOMID [Suspect]
     Indication: MULTIPLE MYELOMA
     Dosage: 400 MG, QD, ORAL
     Route: 048
     Dates: start: 20030514, end: 20030821
  2. DEXAMETHASONE [Suspect]
     Indication: MULTIPLE MYELOMA
     Dosage: 40 MG, X 4 DAYS/Q 28 D, ORAL
     Route: 048
     Dates: start: 20030912, end: 20040915
  3. CYTOXAN [Suspect]
     Indication: MULTIPLE MYELOMA
     Dosage: 670 MG X 4 DAYS/Q 28 D, INTRAVENOUS
     Route: 042
     Dates: start: 20030912, end: 20030915
  4. ETOPOSIDE [Suspect]
     Indication: MULTIPLE MYELOMA
     Dosage: 67 MG, X 4 DAYS/Q 28 D, INTRAVENOUS
     Route: 042
     Dates: start: 20030912, end: 20030915
  5. CISPLATIN [Suspect]
     Indication: MULTIPLE MYELOMA
     Dosage: 25 MG, X 4 DAYS/Q 28 D, INTRAVENOUS
     Route: 042
     Dates: start: 20030912, end: 20030915
  6. MELPHALAN (MELPHALAN) [Suspect]
     Indication: MULTIPLE MYELOMA
     Dosage: 350 MG, QD, INTRAVENOUS
     Route: 042
     Dates: start: 20031001, end: 20040201
  7. VIOXX [Concomitant]
  8. OXYCONTIN [Concomitant]
  9. SENNA (SENNA) [Concomitant]
  10. ZOLPIDEM TARTRATE [Concomitant]
  11. ACYCLOVIR [Concomitant]
  12. FLEXERIL [Concomitant]
  13. VENLAFAXINE SR (VENLAFAXINE) [Concomitant]
  14. SYNTHROID [Concomitant]
  15. LOVENOX [Concomitant]
  16. ARANESP [Concomitant]
  17. MULTIVITAMIN (MULTIVITAMINS) [Concomitant]
  18. HEPARIN FLUSH (HEPARIN) [Concomitant]
  19. PANTOPRAZOLE (PANTOPRAZOLE) [Concomitant]

REACTIONS (8)
  - FEMORAL NECK FRACTURE [None]
  - HYPERHIDROSIS [None]
  - LUNG INFILTRATION [None]
  - NAUSEA [None]
  - PAIN [None]
  - PNEUMONIA [None]
  - SYNCOPE [None]
  - VOMITING [None]
